FAERS Safety Report 4402826-7 (Version None)
Quarter: 2004Q3

REPORT INFORMATION
  Report Type: 
  Country: None (occurrence: None)
  Receive Date: 20040721
  Receipt Date: 20040624
  Transmission Date: 20050211
  Serious: Yes (Death)
  Sender: FDA-Public Use
  Company Number: JP-BRISTOL-MYERS SQUIBB COMPANY-12635256

PATIENT
  Age: 44 Year
  Sex: Female

DRUGS (3)
  1. IFOMIDE [Suspect]
     Indication: UTERINE CANCER
     Route: 041
     Dates: start: 19991001, end: 20000301
  2. DOXORUBICIN HCL [Suspect]
     Indication: UTERINE CANCER
     Route: 041
     Dates: start: 19991001, end: 20000301
  3. CISPLATIN [Suspect]
     Indication: UTERINE CANCER
     Route: 041
     Dates: start: 19991001, end: 20000301

REACTIONS (6)
  - ACUTE MYELOID LEUKAEMIA [None]
  - CARDIAC FAILURE [None]
  - HAEMORRHAGE SUBCUTANEOUS [None]
  - MULTI-ORGAN FAILURE [None]
  - NASOPHARYNGITIS [None]
  - RENAL FAILURE [None]
